FAERS Safety Report 4559370-6 (Version None)
Quarter: 2005Q1

REPORT INFORMATION
  Report Type: 
  Country: None (occurrence: None)
  Receive Date: 20050124
  Receipt Date: 20050111
  Transmission Date: 20050727
  Serious: Yes (Other)
  Sender: FDA-Public Use
  Company Number: US-GLAXOSMITHKLINE-A0540708A

PATIENT
  Age: 70 Year
  Sex: Male

DRUGS (6)
  1. NICODERM CQ [Suspect]
     Indication: SMOKING CESSATION THERAPY
     Route: 062
     Dates: start: 20050105, end: 20050106
  2. DILTIAZEM [Concomitant]
  3. ALBUTEROL WITH NEBULIZER [Concomitant]
  4. NEXIUM [Concomitant]
  5. BAYER [Concomitant]
  6. FLOMAX [Concomitant]

REACTIONS (5)
  - DELIRIUM [None]
  - ERYTHEMA [None]
  - NAUSEA [None]
  - OVERDOSE [None]
  - RASH MACULAR [None]
